FAERS Safety Report 7262430-2 (Version None)
Quarter: 2011Q1

REPORT INFORMATION
  Report Type: 
  Country: None (occurrence: None)
  Receive Date: 20110130
  Receipt Date: 20101118
  Transmission Date: 20110831
  Serious: No
  Sender: FDA-Public Use
  Company Number: US-ABBOTT-10P-163-0686427-00

PATIENT
  Age: 57 Year
  Sex: Female

DRUGS (5)
  1. METANX [Concomitant]
     Indication: NAUSEA
  2. METHOTREXATE [Concomitant]
     Indication: PRODUCT USED FOR UNKNOWN INDICATION
  3. WELLBUTRIN [Concomitant]
     Indication: PRODUCT USED FOR UNKNOWN INDICATION
  4. LEVOXYL [Concomitant]
     Indication: PRODUCT USED FOR UNKNOWN INDICATION
  5. HUMIRA [Suspect]
     Indication: RHEUMATOID ARTHRITIS

REACTIONS (5)
  - PAIN [None]
  - OROPHARYNGEAL PAIN [None]
  - RHINORRHOEA [None]
  - NASAL CONGESTION [None]
  - COUGH [None]
